FAERS Safety Report 7033433-8 (Version None)
Quarter: 2010Q4

REPORT INFORMATION
  Report Type: 
  Country: None (occurrence: None)
  Receive Date: 20101007
  Receipt Date: 20100929
  Transmission Date: 20110411
  Serious: Yes (Other)
  Sender: FDA-Public Use
  Company Number: CHPA2010US15466

PATIENT
  Age: 76 Year
  Sex: Female
  Weight: 52.608 kg

DRUGS (3)
  1. EXCEDRIN TENSION HEADACHE(NCH) [Suspect]
     Indication: MIGRAINE
     Dosage: 1 DF, BID
     Route: 048
  2. EXCEDRIN TENSION HEADACHE(NCH) [Suspect]
     Dosage: UNK , UNK
     Route: 048
  3. VITAMIN D [Concomitant]

REACTIONS (2)
  - DRUG DEPENDENCE [None]
  - INTENTIONAL DRUG MISUSE [None]
